FAERS Safety Report 20151278 (Version 2)
Quarter: 2021Q4

REPORT INFORMATION
  Report Type: Spontaneous
  Country: US (occurrence: US)
  Receive Date: 20211206
  Receipt Date: 20211220
  Transmission Date: 20220304
  Serious: No
  Sender: FDA-Public Use
  Company Number: US-GW PHARMA-202111USGW05524

PATIENT

DRUGS (1)
  1. EPIDIOLEX [Suspect]
     Active Substance: CANNABIDIOL
     Indication: Epilepsy
     Dosage: 300 MILLIGRAM, BID
     Route: 048
     Dates: start: 202111

REACTIONS (10)
  - Seizure cluster [Recovered/Resolved]
  - Urinary retention [Unknown]
  - Condition aggravated [Unknown]
  - Hypotonia [Unknown]
  - Impatience [Unknown]
  - Insomnia [Unknown]
  - Agitation [Unknown]
  - Aggression [Unknown]
  - Decreased appetite [Unknown]
  - Product use in unapproved indication [Unknown]

NARRATIVE: CASE EVENT DATE: 20210101
